FAERS Safety Report 5318019-5 (Version None)
Quarter: 2007Q1

REPORT INFORMATION
  Report Type: 
  Country: None (occurrence: None)
  Receive Date: 20070131
  Receipt Date: 20060313
  Transmission Date: 20070707
  Serious: Yes (Other)
  Sender: FDA-Public Use
  Company Number: 2006BH008798

PATIENT
  Sex: Female

DRUGS (2)
  1. DIANEAL PD-2 W/ DEXTROSE 1.5% [Suspect]
     Indication: DIALYSIS
     Dosage: 2.5 L; IP
     Route: 033
  2. DIANEAL [Suspect]
     Indication: DIALYSIS
     Dosage: 5 L; IP

REACTIONS (3)
  - PERITONITIS BACTERIAL [None]
  - SEPSIS PASTEURELLA [None]
  - STAPHYLOCOCCAL INFECTION [None]
